FAERS Safety Report 25968613 (Version 2)
Quarter: 2025Q4

REPORT INFORMATION
  Report Type: Spontaneous
  Country: US (occurrence: US)
  Receive Date: 20251028
  Receipt Date: 20251110
  Transmission Date: 20260117
  Serious: Yes (Hospitalization)
  Sender: CHEPLAPHARM
  Company Number: US-CHEPLA-2025012233

PATIENT
  Age: 63 Year
  Sex: Male
  Weight: 58 kg

DRUGS (5)
  1. OLANZAPINE [Suspect]
     Active Substance: OLANZAPINE
     Indication: Nausea
     Route: 048
     Dates: start: 20221221, end: 20251006
  2. LYRICA [Suspect]
     Active Substance: PREGABALIN
     Indication: Neuropathy peripheral
     Dosage: 150 MG, 3X/DAY(TID), ORAL?DAILY DOSE: 450 MILLIGRAM
     Route: 048
     Dates: start: 20241213, end: 20251006
  3. GABAPENTIN [Suspect]
     Active Substance: GABAPENTIN
     Indication: Neuropathy peripheral
     Route: 048
     Dates: end: 20251011
  4. METHADONE [Concomitant]
     Active Substance: METHADONE HYDROCHLORIDE
  5. OXYCODONE [Concomitant]
     Active Substance: OXYCODONE

REACTIONS (7)
  - Dyskinesia [Recovered/Resolved]
  - Abdominal pain upper [Unknown]
  - Blood bilirubin increased [Unknown]
  - Hypotension [Unknown]
  - Escherichia infection [Unknown]
  - Myoclonus [Unknown]
  - Off label use [Recovered/Resolved]

NARRATIVE: CASE EVENT DATE: 20251006
